FAERS Safety Report 6654055-4 (Version None)
Quarter: 2010Q1

REPORT INFORMATION
  Report Type: 
  Country: None (occurrence: None)
  Receive Date: 20100326
  Receipt Date: 20100312
  Transmission Date: 20100710
  Serious: Yes (Other)
  Sender: FDA-Public Use
  Company Number: PHEH2010US03071

PATIENT
  Age: 57 Year
  Sex: Female

DRUGS (13)
  1. ENABLEX [Suspect]
     Dosage: 15 MG, QD
  2. ENABLEX [Suspect]
     Dosage: 30 MG, QD
  3. ENABLEX [Suspect]
     Dosage: 15 MG, QD
  4. MOTRIN [Concomitant]
     Dosage: 800 MG, UNK
  5. NITROGLYCERIN [Concomitant]
     Dosage: 2.5 MG, UNK
  6. CYMBALTA [Concomitant]
     Dosage: 60 MG, UNK
  7. ENAPRIL ^EXCELL^ [Concomitant]
     Dosage: 10 MG, UNK
  8. ZOCOR [Concomitant]
     Dosage: 40 MG, UNK
  9. HYDROCHLOROTHIAZIDE [Concomitant]
     Dosage: 25 MG, UNK
  10. ALBUTEROL [Concomitant]
     Dosage: 4 MG, UNK
  11. TOPROL-XL [Concomitant]
     Dosage: 100 MG, UNK
  12. KEFLEX [Concomitant]
     Dosage: 250 MG, UNK
  13. TRILIPIX [Concomitant]
     Dosage: 153 MG, UNK

REACTIONS (6)
  - DIZZINESS [None]
  - DRY MOUTH [None]
  - FEELING ABNORMAL [None]
  - HEART RATE INCREASED [None]
  - NERVOUS SYSTEM DISORDER [None]
  - VISION BLURRED [None]
